FAERS Safety Report 9795144 (Version 1)
Quarter: 2014Q1

REPORT INFORMATION
  Report Type: Spontaneous
  Country: US (occurrence: US)
  Receive Date: 20140103
  Receipt Date: 20140103
  Transmission Date: 20141002
  Serious: No
  Sender: FDA-Public Use
  Company Number: US-009507513-1312USA010073

PATIENT
  Age: 30 Year
  Sex: Female
  Weight: 83.45 kg

DRUGS (1)
  1. NUVARING [Suspect]
     Indication: CONTRACEPTION
     Dosage: 1 RING FOR 3 WEEKS FOLLOWED WEEK FREE BREAK
     Route: 067
     Dates: start: 20131203

REACTIONS (1)
  - Metrorrhagia [Unknown]
